FAERS Safety Report 7001046-X (Version None)
Quarter: 2010Q3

REPORT INFORMATION
  Report Type: 
  Country: None (occurrence: None)
  Receive Date: 20100920
  Receipt Date: 20070614
  Transmission Date: 20110219
  Serious: No
  Sender: FDA-Public Use
  Company Number: US-ASTRAZENECA-2006UW24220

PATIENT
  Age: 15727 Day
  Sex: Female
  Weight: 75.7 kg

DRUGS (8)
  1. SEROQUEL [Suspect]
     Indication: BIPOLAR DISORDER
     Dosage: 100-300 MG
     Route: 048
     Dates: start: 20011118
  2. SEROQUEL [Suspect]
     Route: 048
     Dates: end: 20050101
  3. GEODON [Concomitant]
     Dosage: STRENGTH 20MG AND 80 MG, 40-160 MG DAILY
     Dates: start: 20050505
  4. RISPERDAL [Concomitant]
  5. ZYPREXA [Concomitant]
     Dates: start: 19990224
  6. ZOLOFT [Concomitant]
     Dates: start: 20050505
  7. ATIVAN [Concomitant]
     Dosage: 1-4 MG
     Dates: start: 20050429
  8. ALPRAZOLAM [Concomitant]
     Dates: start: 19990224

REACTIONS (6)
  - BLOOD CHOLESTEROL INCREASED [None]
  - BLOOD TRIGLYCERIDES INCREASED [None]
  - DIABETES MELLITUS [None]
  - FALL [None]
  - HYPERGLYCAEMIA [None]
  - TYPE 2 DIABETES MELLITUS [None]
